FAERS Safety Report 7278012-2 (Version None)
Quarter: 2011Q1

REPORT INFORMATION
  Report Type: 
  Country: None (occurrence: None)
  Receive Date: 20110207
  Receipt Date: 20110127
  Transmission Date: 20110831
  Serious: Yes (Death, Other)
  Sender: FDA-Public Use
  Company Number: PHHY2011GR02051

PATIENT
  Age: 22 Year
  Sex: Male

DRUGS (5)
  1. TOPOTECAN [Concomitant]
  2. CISPLATIN [Suspect]
     Dosage: 4 CYCLES
  3. IFOSFAMIDE [Suspect]
     Dosage: 4 CYCLES
  4. PACLITAXEL [Suspect]
     Dosage: 4 CYCLES WERE ADMINISTERED
  5. BEVACIZUMAB [Suspect]
     Dosage: 4 CYCLES

REACTIONS (6)
  - DISEASE RECURRENCE [None]
  - RENAL IMPAIRMENT [None]
  - ABDOMINAL MASS [None]
  - GASTROINTESTINAL DISORDER [None]
  - NEPHROBLASTOMA [None]
  - INTESTINAL OBSTRUCTION [None]
